FAERS Safety Report 4337814-2 (Version None)
Quarter: 2004Q2

REPORT INFORMATION
  Report Type: 
  Country: None (occurrence: None)
  Receive Date: 20040413
  Receipt Date: 20040405
  Transmission Date: 20050107
  Serious: Yes (Other)
  Sender: FDA-Public Use
  Company Number: PHEH2004US03853

PATIENT
  Age: 67 Year
  Sex: Female

DRUGS (1)
  1. ZELNORM [Suspect]
     Dosage: 6 MG, BID
     Route: 048
     Dates: start: 20030908, end: 20040402

REACTIONS (4)
  - OCULOGYRATION [None]
  - TARDIVE DYSKINESIA [None]
  - TONGUE BITING [None]
  - TREMOR [None]
